FAERS Safety Report 4519780-X (Version None)
Quarter: 2004Q4

REPORT INFORMATION
  Report Type: 
  Country: None (occurrence: None)
  Receive Date: 20041201
  Receipt Date: 20041201
  Transmission Date: 20050328
  Serious: No
  Sender: FDA-Public Use
  Company Number: None

PATIENT
  Age: 23 Year
  Sex: Female
  Weight: 61.2356 kg

DRUGS (1)
  1. GENERIC MICRONOR [Suspect]
     Indication: MENOMETRORRHAGIA
     Dosage: 1 PO QD
     Route: 048

REACTIONS (2)
  - HAEMORRHAGE [None]
  - MUSCLE CRAMP [None]
